FAERS Safety Report 16442227 (Version 4)
Quarter: 2019Q3

REPORT INFORMATION
  Report Type: Spontaneous
  Country: US (occurrence: US)
  Receive Date: 20190617
  Receipt Date: 20190730
  Transmission Date: 20191004
  Serious: Yes (Hospitalization, Other)
  Sender: FDA-Public Use
  Company Number: US-SA-2019SA162933

PATIENT
  Age: 56 Year
  Sex: Female

DRUGS (13)
  1. OXALIPLATIN. [Suspect]
     Active Substance: OXALIPLATIN
     Indication: PANCREATIC CARCINOMA
     Dosage: UNK UNK, UNK
     Route: 065
     Dates: start: 201603, end: 2016
  2. IRINOTECAN [Suspect]
     Active Substance: IRINOTECAN
     Indication: PANCREATIC CARCINOMA
     Dosage: UNK UNK, UNK
     Route: 065
     Dates: start: 201603, end: 2016
  3. OXALIPLATIN. [Suspect]
     Active Substance: OXALIPLATIN
     Indication: METASTASES TO LIVER
     Dosage: DOSE REDUCED
     Dates: start: 2016, end: 201608
  4. 5-FLUOROURACIL [FLUOROURACIL] [Suspect]
     Active Substance: FLUOROURACIL
     Indication: METASTASES TO LIVER
     Dosage: DOSE REDUCED
     Dates: start: 2016, end: 201608
  5. FOLINIC ACID [Suspect]
     Active Substance: LEUCOVORIN
     Indication: DUCTAL ADENOCARCINOMA OF PANCREAS
     Dosage: UNK UNK, QCY
     Route: 065
  6. OXALIPLATIN. [Suspect]
     Active Substance: OXALIPLATIN
     Indication: DUCTAL ADENOCARCINOMA OF PANCREAS
  7. IRINOTECAN [Suspect]
     Active Substance: IRINOTECAN
     Indication: METASTASES TO LIVER
     Dosage: DOSE REDUCED
     Dates: start: 2016, end: 201608
  8. LEUCOVORIN CALCIUM. [Suspect]
     Active Substance: LEUCOVORIN CALCIUM
     Indication: METASTASES TO LIVER
     Dosage: DOSE REDUCED
  9. 5-FLUOROURACIL [FLUOROURACIL] [Suspect]
     Active Substance: FLUOROURACIL
     Indication: PANCREATIC CARCINOMA
     Dosage: UNK UNK, QCY
     Route: 065
     Dates: start: 201603, end: 2016
  10. LEUCOVORIN CALCIUM. [Suspect]
     Active Substance: LEUCOVORIN CALCIUM
     Indication: DUCTAL ADENOCARCINOMA OF PANCREAS
  11. IRINOTECAN [Suspect]
     Active Substance: IRINOTECAN
     Indication: DUCTAL ADENOCARCINOMA OF PANCREAS
  12. LEUCOVORIN CALCIUM. [Suspect]
     Active Substance: LEUCOVORIN CALCIUM
     Indication: PANCREATIC CARCINOMA
     Dosage: UNK UNK, UNK
     Route: 065
     Dates: start: 201603
  13. FOLINIC ACID [Suspect]
     Active Substance: LEUCOVORIN
     Indication: METASTASES TO LIVER

REACTIONS (10)
  - Clostridium difficile colitis [Unknown]
  - Nausea [Unknown]
  - Mucosal inflammation [Unknown]
  - Diarrhoea [Unknown]
  - Vomiting [Unknown]
  - Toxicity to various agents [Unknown]
  - Dehydration [Unknown]
  - Syncope [Unknown]
  - Delirium [Unknown]
  - Hypotension [Unknown]

NARRATIVE: CASE EVENT DATE: 2016
